FAERS Safety Report 5193055-0 (Version None)
Quarter: 2006Q4

REPORT INFORMATION
  Report Type: 
  Country: None (occurrence: None)
  Receive Date: 20061228
  Receipt Date: 20060322
  Transmission Date: 20070319
  Serious: No
  Sender: FDA-Public Use
  Company Number: US-GLAXOSMITHKLINE-A0598620A

PATIENT
  Age: 72 Year
  Sex: Male

DRUGS (17)
  1. AVODART [Suspect]
     Indication: BENIGN PROSTATIC HYPERPLASIA
     Dosage: .5MG PER DAY
     Route: 048
     Dates: start: 20051201
  2. PREDNISONE TAB [Concomitant]
  3. IMURAN [Concomitant]
  4. HYDROCHLOROTHIAZIDE [Concomitant]
  5. ZOLOFT [Concomitant]
  6. LANOXIN [Concomitant]
  7. PROTONIX [Concomitant]
  8. SYNTHROID [Concomitant]
  9. CALTRATE [Concomitant]
  10. COZAAR [Concomitant]
  11. LIPITOR [Concomitant]
  12. ASPIRIN [Concomitant]
  13. CENTRUM SILVER [Concomitant]
  14. AMBRIL [Concomitant]
  15. ACTONEL [Concomitant]
  16. NOVOLOG [Concomitant]
  17. LANTUS [Concomitant]

REACTIONS (1)
  - NOCTURIA [None]
